FAERS Safety Report 20444304 (Version 2)
Quarter: 2022Q1

REPORT INFORMATION
  Report Type: Spontaneous
  Country: US (occurrence: US)
  Receive Date: 20220208
  Receipt Date: 20220317
  Transmission Date: 20220424
  Serious: Yes (Other)
  Sender: FDA-Public Use
  Company Number: US-PFIZER INC-202200158500

PATIENT
  Age: 24 Year
  Sex: Female

DRUGS (1)
  1. CHANTIX [Suspect]
     Active Substance: VARENICLINE TARTRATE
     Indication: Smoking cessation therapy
     Dosage: UNK

REACTIONS (12)
  - Maternal exposure during pregnancy [Unknown]
  - Haemorrhage [Unknown]
  - Cervix carcinoma [Unknown]
  - Appendicitis [Unknown]
  - Endometriosis [Unknown]
  - Thrombosis [Unknown]
  - Systemic lupus erythematosus [Unknown]
  - Autoimmune disorder [Unknown]
  - Nausea [Unknown]
  - Vomiting [Unknown]
  - Illness [Unknown]
  - COVID-19 [Unknown]

NARRATIVE: CASE EVENT DATE: 20190101
